FAERS Safety Report 23526965 (Version 1)
Quarter: 2024Q1

REPORT INFORMATION
  Report Type: Spontaneous
  Country: US (occurrence: None)
  Receive Date: 20240215
  Receipt Date: 20240215
  Transmission Date: 20240410
  Serious: Yes (Hospitalization)
  Sender: FDA-Public Use
  Company Number: None

PATIENT
  Sex: Female

DRUGS (5)
  1. AMBRISENTAN [Suspect]
     Active Substance: AMBRISENTAN
     Indication: Pulmonary arterial hypertension
     Dosage: FREQUENCY : DAILY;?
     Route: 048
     Dates: start: 202303
  2. TRIAMCINOLONE ACET CRM [Concomitant]
  3. LIDOCAINE/PRILOCAINE CRM [Concomitant]
  4. ADEMPAS [Concomitant]
  5. REMODULIN MDV [Concomitant]

REACTIONS (5)
  - Device delivery system issue [None]
  - Device connection issue [None]
  - Catheter site discharge [None]
  - Vomiting [None]
  - Malaise [None]
